FAERS Safety Report 16704711 (Version 3)
Quarter: 2019Q3

REPORT INFORMATION
  Report Type: Spontaneous
  Country: BR (occurrence: BR)
  Receive Date: 20190814
  Receipt Date: 20190910
  Transmission Date: 20191004
  Serious: Yes (Life-Threatening, Hospitalization, Other)
  Sender: FDA-Public Use
  Company Number: BR-INCYTE CORPORATION-2019IN008185

PATIENT

DRUGS (2)
  1. JAKAVI [Suspect]
     Active Substance: RUXOLITINIB
     Indication: MYELOFIBROSIS
     Dosage: 20 MG, BID
     Route: 065
  2. JAKAVI [Suspect]
     Active Substance: RUXOLITINIB
     Indication: SPLENOMEGALY
     Dosage: 5 MG, BID
     Route: 065

REACTIONS (12)
  - Cardiac failure [Unknown]
  - Blood potassium increased [Unknown]
  - Coma [Recovered/Resolved]
  - Vomiting [Recovered/Resolved]
  - Splenomegaly [Not Recovered/Not Resolved]
  - Splenomegaly [Recovered/Resolved]
  - Platelet count decreased [Unknown]
  - Early satiety [Recovered/Resolved]
  - Drug ineffective [Unknown]
  - Blood glucose decreased [Unknown]
  - Fatigue [Recovered/Resolved]
  - Weight decreased [Recovered/Resolved]
